FAERS Safety Report 25667550 (Version 1)
Quarter: 2025Q3

REPORT INFORMATION
  Report Type: Spontaneous
  Country: US (occurrence: US)
  Receive Date: 20250811
  Receipt Date: 20250811
  Transmission Date: 20251021
  Serious: Yes (Other)
  Sender: BRISTOL-MYERS SQUIBB COMPANY
  Company Number: US-BRISTOL-MYERS SQUIBB COMPANY-2025-111349

PATIENT
  Age: 57 Year
  Sex: Male

DRUGS (1)
  1. REVLIMID [Suspect]
     Active Substance: LENALIDOMIDE
     Indication: Plasma cell myeloma
     Dosage: DAILY FOR 21 DAYS, THEN 7 DAYS
     Route: 048

REACTIONS (4)
  - Nephrolithiasis [Not Recovered/Not Resolved]
  - Musculoskeletal stiffness [Not Recovered/Not Resolved]
  - Tremor [Not Recovered/Not Resolved]
  - Pulmonary thrombosis [Unknown]
